FAERS Safety Report 8923534 (Version 1)
Quarter: 2012Q4

REPORT INFORMATION
  Report Type: 
  Country: CN (occurrence: CN)
  Receive Date: 20121123
  Receipt Date: 20121123
  Transmission Date: 20130627
  Serious: Yes (Other)
  Sender: FDA-Public Use
  Company Number: CN-BRISTOL-MYERS SQUIBB COMPANY-17127655

PATIENT
  Age: 38 Year
  Sex: Male

DRUGS (1)
  1. BARACLUDE [Suspect]
     Route: 048
     Dates: start: 201111

REACTIONS (3)
  - Hepatitis B e antigen positive [Unknown]
  - Blood creatine phosphokinase increased [Unknown]
  - Myalgia [Unknown]
